FAERS Safety Report 4707237-2 (Version None)
Quarter: 2005Q2

REPORT INFORMATION
  Report Type: 
  Country: None (occurrence: None)
  Receive Date: 20050630
  Receipt Date: 20050621
  Transmission Date: 20051028
  Serious: Yes (Hospitalization, Other)
  Sender: FDA-Public Use
  Company Number: HQWYE601721JUN05

PATIENT
  Age: 68 Year
  Sex: Female

DRUGS (3)
  1. ETODOLAC [Suspect]
     Dosage: 400 MG 1X PER 1 DAY ORAL
     Route: 048
     Dates: start: 20050608, end: 20050608
  2. CALCITRIOL [Suspect]
     Indication: CALCIUM DEFICIENCY
     Dosage: 0.5 UG 1X PER 1 DAY ORAL
     Route: 048
     Dates: start: 20050608, end: 20050608
  3. GASLON (IRSOGLADINE MALEATE, GAS) [Suspect]
     Indication: GASTRITIS
     Dosage: 16 MG 1X PER 1 DAY ORAL
     Route: 048
     Dates: start: 20050608, end: 20050608

REACTIONS (4)
  - ERYTHEMA [None]
  - EYE PRURITUS [None]
  - FACE OEDEMA [None]
  - ORAL MUCOSAL BLISTERING [None]
